FAERS Safety Report 17557328 (Version 4)
Quarter: 2020Q3

REPORT INFORMATION
  Report Type: Report from Study
  Country: US (occurrence: US)
  Receive Date: 20200318
  Receipt Date: 20200727
  Transmission Date: 20201102
  Serious: Yes (Hospitalization, Other)
  Sender: FDA-Public Use
  Company Number: US-SHIRE-US202009469

PATIENT
  Age: 53 Year
  Sex: Female
  Weight: 79.82 kg

DRUGS (3)
  1. GATTEX [Suspect]
     Active Substance: TEDUGLUTIDE\WATER
     Dosage: 3.990 UNK
     Route: 058
     Dates: start: 20170105
  2. GATTEX [Suspect]
     Active Substance: TEDUGLUTIDE\WATER
     Indication: MALABSORPTION
     Dosage: 0.44 MILLILITER UNDER THE SKIN
     Route: 065
  3. GATTEX [Suspect]
     Active Substance: TEDUGLUTIDE\WATER
     Dosage: UNK, 1X/DAY:QD
     Route: 058
     Dates: start: 20171205

REACTIONS (5)
  - Hypotension [Recovered/Resolved]
  - Hypokalaemia [Not Recovered/Not Resolved]
  - Gastrointestinal infection [Recovered/Resolved]
  - Hospitalisation [Recovered/Resolved]
  - Intentional product use issue [Unknown]

NARRATIVE: CASE EVENT DATE: 20200323
